FAERS Safety Report 15138498 (Version 2)
Quarter: 2018Q3

REPORT INFORMATION
  Report Type: Spontaneous
  Country: US (occurrence: US)
  Receive Date: 20180713
  Receipt Date: 20180810
  Transmission Date: 20181010
  Serious: No
  Sender: FDA-Public Use
  Company Number: US-BRISTOL-MYERS SQUIBB COMPANY-BMS-2018-065073

PATIENT
  Sex: Female

DRUGS (1)
  1. SPRYCEL [Suspect]
     Active Substance: DASATINIB
     Indication: CHRONIC MYELOID LEUKAEMIA
     Dosage: 100 MG, QD
     Route: 048
     Dates: start: 201806

REACTIONS (10)
  - Myalgia [Unknown]
  - Cough [Unknown]
  - Headache [Unknown]
  - Weight increased [Unknown]
  - Fatigue [Unknown]
  - Appetite disorder [Unknown]
  - Constipation [Unknown]
  - Respiratory tract congestion [Unknown]
  - Abdominal pain upper [Unknown]
  - Arthralgia [Unknown]
